FAERS Safety Report 5607317-3 (Version None)
Quarter: 2008Q1

REPORT INFORMATION
  Report Type: 
  Country: None (occurrence: None)
  Receive Date: 20080130
  Receipt Date: 20080116
  Transmission Date: 20080703
  Serious: Yes (Hospitalization)
  Sender: FDA-Public Use
  Company Number: US-JNJFOC-20080105977

PATIENT
  Sex: Female
  Weight: 61.9 kg

DRUGS (7)
  1. TYLENOL W/ CODEINE NO. 3 [Suspect]
     Indication: PAIN
  2. TYLENOL [Suspect]
     Indication: SUICIDE ATTEMPT
  3. ALCOHOL [Suspect]
     Indication: SUICIDE ATTEMPT
  4. COUMADIN [Concomitant]
     Indication: COAGULOPATHY
     Route: 048
  5. ADVAIR DISKUS 100/50 [Concomitant]
  6. ALBUTEROL [Concomitant]
  7. SINGULAIR [Concomitant]

REACTIONS (2)
  - MULTIPLE DRUG OVERDOSE [None]
  - SUICIDE ATTEMPT [None]
